FAERS Safety Report 6565784-5 (Version None)
Quarter: 2010Q1

REPORT INFORMATION
  Report Type: 
  Country: None (occurrence: None)
  Receive Date: 20100201
  Receipt Date: 20090520
  Transmission Date: 20100710
  Serious: No
  Sender: FDA-Public Use
  Company Number: US-ABBOTT-09P-163-0572861-00

PATIENT
  Sex: Female
  Weight: 59.02 kg

DRUGS (1)
  1. LUPRON DEPOT [Suspect]
     Indication: INJECTION SITE EROSION
     Route: 050
     Dates: start: 20090427, end: 20090427

REACTIONS (2)
  - INJECTION SITE EROSION [None]
  - INJURY ASSOCIATED WITH DEVICE [None]
